FAERS Safety Report 18118342 (Version 1)
Quarter: 2020Q3

REPORT INFORMATION
  Report Type: Spontaneous
  Country: US (occurrence: US)
  Receive Date: 20200805
  Receipt Date: 20200805
  Transmission Date: 20201103
  Serious: Yes (Disabling)
  Sender: FDA-Public Use
  Company Number: None

PATIENT
  Age: 60 Year
  Sex: Female
  Weight: 114.75 kg

DRUGS (4)
  1. TYLENOL [Concomitant]
     Active Substance: ACETAMINOPHEN
  2. OMEPRAZOLE. [Concomitant]
     Active Substance: OMEPRAZOLE
  3. LOVENOX [Concomitant]
     Active Substance: ENOXAPARIN SODIUM
  4. SWEET PEA ANTI?BACTERIAL SCENTED HAND SANITIZER [Suspect]
     Active Substance: ALCOHOL
     Indication: COVID-19 PROPHYLAXIS
     Dosage: ?          OTHER ROUTE:HAND SANITIZER?
     Dates: start: 20200305, end: 20200805

REACTIONS (2)
  - Headache [None]
  - Eye pruritus [None]

NARRATIVE: CASE EVENT DATE: 20200313
